FAERS Safety Report 13653887 (Version 1)
Quarter: 2017Q2

REPORT INFORMATION
  Report Type: Spontaneous
  Country: CN (occurrence: CN)
  Receive Date: 20170614
  Receipt Date: 20170614
  Transmission Date: 20170830
  Serious: Yes (Other)
  Sender: FDA-Public Use
  Company Number: CN-BAYER-2017-106669

PATIENT
  Age: 44 Year
  Sex: Male
  Weight: 60 kg

DRUGS (6)
  1. KOGENATE [Suspect]
     Active Substance: ANTIHEMOPHILIC FACTOR, HUMAN RECOMBINANT
     Indication: CEREBRAL HAEMATOMA
     Dosage: 3000 IU, BID
     Route: 040
     Dates: start: 20170404
  2. KOGENATE [Suspect]
     Active Substance: ANTIHEMOPHILIC FACTOR, HUMAN RECOMBINANT
     Indication: SUBARACHNOID HAEMORRHAGE
  3. FACTOR VIII (ANTIHAEMOPHILIC FACTOR) [Concomitant]
     Active Substance: ANTIHEMOPHILIC FACTOR HUMAN
     Indication: FACTOR VIII DEFICIENCY
     Dosage: NOT REPORTED
  4. MANNITOL. [Concomitant]
     Active Substance: MANNITOL
     Indication: SUPPORTIVE CARE
     Dosage: 125 ML, QID
     Route: 041
     Dates: start: 20170404
  5. METOCLOPRAMIDE. [Concomitant]
     Active Substance: METOCLOPRAMIDE
     Indication: SUPPORTIVE CARE
     Dosage: UNK
     Route: 030
     Dates: start: 20170404
  6. CRYOPRECIPITATE [Concomitant]
     Active Substance: CRYOPRECIPITATED ANTIHEMOPHILIC FACTOR (HUMAN)
     Indication: FACTOR VIII DEFICIENCY

REACTIONS (4)
  - Subdural haemorrhage [None]
  - Cerebral haematoma [Recovered/Resolved]
  - Subarachnoid haemorrhage [None]
  - Arterial disorder [None]

NARRATIVE: CASE EVENT DATE: 20170405
